FAERS Safety Report 9457725 (Version 1)
Quarter: 2013Q3

REPORT INFORMATION
  Report Type: Spontaneous
  Country: GB (occurrence: GB)
  Receive Date: 20130814
  Receipt Date: 20130814
  Transmission Date: 20140515
  Serious: Yes (Hospitalization)
  Sender: FDA-Public Use
  Company Number: GB-RANBAXY-2013R1-72149

PATIENT
  Age: 62 Year
  Sex: Male

DRUGS (7)
  1. LORAZEPAM [Suspect]
     Indication: ANXIETY
     Dosage: 1 MG, BID
     Route: 065
  2. LORAZEPAM [Suspect]
     Indication: ANXIETY
     Dosage: UNK
     Route: 065
  3. ALPRAZOLAM [Suspect]
     Indication: ANXIETY
     Route: 065
  4. TEMAZEPAM [Suspect]
     Indication: ANXIETY
     Route: 065
  5. DIAZEPAM [Suspect]
     Indication: ANXIETY
     Route: 065
  6. FLUOXETINE [Concomitant]
     Indication: ANTIDEPRESSANT THERAPY
     Dosage: 20 MG, QD
     Route: 065
  7. ZOPICLONE [Concomitant]
     Indication: PRODUCT USED FOR UNKNOWN INDICATION
     Dosage: 7.5 MG, QD
     Route: 065

REACTIONS (3)
  - Self-injurious ideation [Unknown]
  - Suicide attempt [Unknown]
  - Drug dependence [Unknown]
